FAERS Safety Report 7092036-X (Version None)
Quarter: 2010Q4

REPORT INFORMATION
  Report Type: 
  Country: None (occurrence: None)
  Receive Date: 20101109
  Receipt Date: 20081020
  Transmission Date: 20110411
  Serious: No
  Sender: FDA-Public Use
  Company Number: US-KINGPHARMUSA00001-K200801213

PATIENT
  Sex: Male

DRUGS (1)
  1. SKELAXIN [Suspect]
     Indication: MUSCLE STRAIN
     Dosage: 800 MG, SINGLE
     Route: 048
     Dates: start: 20081017, end: 20081017

REACTIONS (1)
  - FLUSHING [None]
